FAERS Safety Report 6529350-X (Version None)
Quarter: 2010Q1

REPORT INFORMATION
  Report Type: 
  Country: None (occurrence: None)
  Receive Date: 20100107
  Receipt Date: 20091130
  Transmission Date: 20100710
  Serious: Yes (Death, Other)
  Sender: FDA-Public Use
  Company Number: US-BAXTER-2009BH011482

PATIENT
  Age: 64 Year
  Sex: Female

DRUGS (1)
  1. HEPARIN SODIUM INJECTION [Suspect]
     Indication: PROPHYLAXIS
     Route: 042
     Dates: start: 20071101, end: 20080501

REACTIONS (7)
  - ASTHENIA [None]
  - DECREASED APPETITE [None]
  - DIARRHOEA [None]
  - EATING DISORDER [None]
  - NAUSEA [None]
  - PANCREATIC CARCINOMA [None]
  - VOMITING [None]
